FAERS Safety Report 18974287 (Version 1)
Quarter: 2021Q1

REPORT INFORMATION
  Report Type: Report from Study
  Country: FR (occurrence: FR)
  Receive Date: 20210305
  Receipt Date: 20210305
  Transmission Date: 20210420
  Serious: Yes (Life-Threatening, Hospitalization, Other)
  Sender: FDA-Public Use
  Company Number: FR-PFIZER INC-2021220993

PATIENT
  Age: 76 Year
  Sex: Male
  Weight: 92 kg

DRUGS (8)
  1. KARDEGIC [Concomitant]
     Active Substance: ASPIRIN DL-LYSINE
  2. COTAREG [Concomitant]
     Active Substance: HYDROCHLOROTHIAZIDE\VALSARTAN
  3. BEVACIZUMAB. [Suspect]
     Active Substance: BEVACIZUMAB
     Indication: HEPATOCELLULAR CARCINOMA
     Dosage: UNK
     Route: 041
     Dates: start: 20210118
  4. ATEZOLIZUMAB. [Suspect]
     Active Substance: ATEZOLIZUMAB
     Indication: HEPATOCELLULAR CARCINOMA
     Dosage: UNK
     Route: 041
     Dates: start: 20210118
  5. INEXIUM [ESOMEPRAZOLE MAGNESIUM] [Concomitant]
     Active Substance: ESOMEPRAZOLE MAGNESIUM
  6. VICTOZA [Concomitant]
     Active Substance: LIRAGLUTIDE
  7. LANTUS [Concomitant]
     Active Substance: INSULIN GLARGINE
  8. METFORMINE [METFORMIN] [Concomitant]
     Active Substance: METFORMIN HYDROCHLORIDE

REACTIONS (2)
  - Tumour haemorrhage [Unknown]
  - Tumour rupture [Not Recovered/Not Resolved]

NARRATIVE: CASE EVENT DATE: 20210122
